FAERS Safety Report 16025977 (Version 1)
Quarter: 2019Q1

REPORT INFORMATION
  Report Type: Spontaneous
  Country: US (occurrence: US)
  Receive Date: 20190302
  Receipt Date: 20190302
  Transmission Date: 20190418
  Serious: Yes (Hospitalization)
  Sender: FDA-Public Use
  Company Number: US-TEVA-2019-US-1019645

PATIENT
  Age: 16 Year
  Sex: Male

DRUGS (1)
  1. CLOZAPINE. [Suspect]
     Active Substance: CLOZAPINE
     Dosage: 600 MILLIGRAM DAILY;

REACTIONS (7)
  - Obsessive-compulsive personality disorder [Unknown]
  - Aggression [Unknown]
  - Speech disorder [Unknown]
  - Tic [Unknown]
  - Cognitive disorder [Unknown]
  - Psychotic disorder [Unknown]
  - Motor dysfunction [Unknown]
